FAERS Safety Report 13930954 (Version 1)
Quarter: 2017Q3

REPORT INFORMATION
  Report Type: Report from Study
  Country: None (occurrence: CA)
  Receive Date: 20170902
  Receipt Date: 20170902
  Transmission Date: 20171127
  Serious: Yes (Hospitalization)
  Sender: FDA-Public Use
  Company Number: CA-ABBVIE-17K-028-2089379-00

PATIENT
  Age: 62 Year
  Sex: Male

DRUGS (1)
  1. HUMIRA [Suspect]
     Active Substance: ADALIMUMAB
     Indication: CROHN^S DISEASE
     Route: 058
     Dates: start: 20120831

REACTIONS (2)
  - Gastrointestinal obstruction [Recovered/Resolved]
  - Flatulence [Recovering/Resolving]

NARRATIVE: CASE EVENT DATE: 201708
